FAERS Safety Report 10419301 (Version 1)
Quarter: 2014Q3

REPORT INFORMATION
  Report Type: Spontaneous
  Country: US (occurrence: None)
  Receive Date: 20140701
  Receipt Date: 20140701
  Transmission Date: 20150326
  Serious: No
  Sender: FDA-Public Use
  Company Number: 1000067720

PATIENT
  Age: 58 Year
  Sex: Female

DRUGS (3)
  1. MVI (VITAMINS NOS) [Concomitant]
  2. CYMBALTA [Concomitant]
     Active Substance: DULOXETINE HYDROCHLORIDE
  3. LINZESS [Suspect]
     Active Substance: LINACLOTIDE
     Indication: IRRITABLE BOWEL SYNDROME
     Route: 048
     Dates: start: 20140521, end: 20140523

REACTIONS (4)
  - Abdominal pain [None]
  - Headache [None]
  - Cold sweat [None]
  - Flatulence [None]

NARRATIVE: CASE EVENT DATE: 20140521
